FAERS Safety Report 18098860 (Version 2)
Quarter: 2020Q3

REPORT INFORMATION
  Report Type: Spontaneous
  Country: CA (occurrence: CA)
  Receive Date: 20200731
  Receipt Date: 20200803
  Transmission Date: 20201103
  Serious: Yes (Life-Threatening, Hospitalization)
  Sender: FDA-Public Use
  Company Number: CA-PFIZER INC-2020290736

PATIENT
  Age: 2 Month
  Sex: Female
  Weight: 5 kg

DRUGS (47)
  1. VINCRISTINE SULFATE. [Suspect]
     Active Substance: VINCRISTINE SULFATE
     Indication: HEPATOBLASTOMA
     Dosage: 0.18 ML
     Route: 042
  2. SODIUM [Concomitant]
     Active Substance: SODIUM
  3. VINCRISTINE SULFATE. [Suspect]
     Active Substance: VINCRISTINE SULFATE
     Dosage: 0.26 ML
     Route: 042
  4. VINCRISTINE SULFATE. [Suspect]
     Active Substance: VINCRISTINE SULFATE
     Dosage: 0.16 ML
     Route: 042
  5. DOXORUBICIN HCL [Suspect]
     Active Substance: DOXORUBICIN HYDROCHLORIDE
     Dosage: 3.9 MG
     Route: 042
  6. CISPLATIN. [Suspect]
     Active Substance: CISPLATIN
     Dosage: 17 MG
     Route: 042
  7. ACETAMINOPHEN. [Concomitant]
     Active Substance: ACETAMINOPHEN
  8. ALTEPLASE. [Concomitant]
     Active Substance: ALTEPLASE
  9. DEXTROSE. [Concomitant]
     Active Substance: DEXTROSE
  10. FILGRASTIM [Concomitant]
     Active Substance: FILGRASTIM
  11. MORPHINE [Concomitant]
     Active Substance: MORPHINE
  12. VANCOMYCIN [Concomitant]
     Active Substance: VANCOMYCIN
  13. ZINC. [Concomitant]
     Active Substance: ZINC
  14. DOXORUBICIN HCL [Suspect]
     Active Substance: DOXORUBICIN HYDROCHLORIDE
     Dosage: 4.6 MG
     Route: 042
  15. DEXMEDETOMIDINE. [Concomitant]
     Active Substance: DEXMEDETOMIDINE
  16. FUROSEMIDE. [Concomitant]
     Active Substance: FUROSEMIDE
  17. TOBRAMYCIN. [Concomitant]
     Active Substance: TOBRAMYCIN
  18. VINCRISTINE SULFATE. [Suspect]
     Active Substance: VINCRISTINE SULFATE
     Dosage: 0.26 ML
     Route: 042
  19. VINCRISTINE SULFATE. [Suspect]
     Active Substance: VINCRISTINE SULFATE
     Dosage: 0.26 ML
     Route: 042
  20. VINCRISTINE SULFATE. [Suspect]
     Active Substance: VINCRISTINE SULFATE
     Dosage: 0.18 ML
     Route: 042
  21. DOXORUBICIN HCL [Suspect]
     Active Substance: DOXORUBICIN HYDROCHLORIDE
     Indication: HEPATOBLASTOMA
     Dosage: 4 MG
     Route: 042
  22. CISPLATIN. [Suspect]
     Active Substance: CISPLATIN
     Dosage: 17 MG
     Route: 042
  23. CEFOTAXIME [Concomitant]
     Active Substance: CEFOTAXIME SODIUM
  24. CEFTRIAXONE FOR INJECTION [Concomitant]
     Active Substance: CEFTRIAXONE
  25. CHOLECALCIFEROL [Concomitant]
     Active Substance: CHOLECALCIFEROL
  26. POTASSIUM [Concomitant]
     Active Substance: POTASSIUM
  27. VINCRISTINE SULFATE. [Suspect]
     Active Substance: VINCRISTINE SULFATE
     Dosage: 0.26 ML
     Route: 042
  28. DIMENHYDRINATE. [Concomitant]
     Active Substance: DIMENHYDRINATE
  29. NYSTATIN. [Concomitant]
     Active Substance: NYSTATIN
  30. POLYETHYLENE GLYCOL [MACROGOL] [Concomitant]
     Active Substance: POLYETHYLENE GLYCOLS
  31. VINCRISTINE SULFATE. [Suspect]
     Active Substance: VINCRISTINE SULFATE
     Dosage: 0.18 ML
     Route: 042
  32. CISPLATIN. [Suspect]
     Active Substance: CISPLATIN
     Indication: HEPATOBLASTOMA
     Dosage: 16 MG
     Route: 042
  33. DEXAMETHASONE. [Concomitant]
     Active Substance: DEXAMETHASONE
  34. LANSOPRAZOLE. [Concomitant]
     Active Substance: LANSOPRAZOLE
  35. MAGNESIUM [Concomitant]
     Active Substance: MAGNESIUM
  36. VINCRISTINE SULFATE. [Suspect]
     Active Substance: VINCRISTINE SULFATE
     Dosage: 0.26 ML
     Route: 042
  37. VINCRISTINE SULFATE. [Suspect]
     Active Substance: VINCRISTINE SULFATE
     Dosage: 0.26 ML
     Route: 042
  38. VINCRISTINE SULFATE. [Suspect]
     Active Substance: VINCRISTINE SULFATE
     Dosage: 0.26 ML
     Route: 042
  39. AMLODIPINE [Concomitant]
     Active Substance: AMLODIPINE BESYLATE
  40. HEPARIN CALCIUM [Concomitant]
     Active Substance: HEPARIN CALCIUM
  41. IRON [Concomitant]
     Active Substance: IRON
  42. METOCLOPRAMIDE. [Concomitant]
     Active Substance: METOCLOPRAMIDE
  43. SUCROSE [Concomitant]
     Active Substance: SUCROSE
  44. SULFAMETHOXAZOLE AND TRIMETHOPRIM [Concomitant]
     Active Substance: SULFAMETHOXAZOLE\TRIMETHOPRIM
  45. ZINECARD [DEXRAZOXANE] [Concomitant]
  46. NIFEDIPINE. [Concomitant]
     Active Substance: NIFEDIPINE
  47. ONDANSETRON [Concomitant]
     Active Substance: ONDANSETRON

REACTIONS (5)
  - Neutropenia [Recovered/Resolved]
  - Pyrexia [Recovered/Resolved]
  - Pancytopenia [Recovered/Resolved]
  - Aplastic anaemia [Recovered/Resolved]
  - Respiratory failure [Recovered/Resolved]
